FAERS Safety Report 13656358 (Version 2)
Quarter: 2017Q3

REPORT INFORMATION
  Report Type: Spontaneous
  Country: US (occurrence: US)
  Receive Date: 20170615
  Receipt Date: 20170728
  Transmission Date: 20171127
  Serious: Yes (Hospitalization, Other)
  Sender: FDA-Public Use
  Company Number: US-MALLINCKRODT-T201702400

PATIENT
  Age: 58 Year
  Sex: Female

DRUGS (4)
  1. LEVAQUIN [Concomitant]
     Active Substance: LEVOFLOXACIN
     Indication: BRONCHITIS
     Dosage: 500 MG
  2. FOLIC ACID. [Concomitant]
     Active Substance: FOLIC ACID
     Indication: PRODUCT USED FOR UNKNOWN INDICATION
     Dosage: 0.4 MG
  3. DILAUDID [Concomitant]
     Active Substance: HYDROMORPHONE HYDROCHLORIDE
     Indication: PAIN
     Dosage: 2 MG
  4. HYDROCODONE/ACETAMINOPHEN [Suspect]
     Active Substance: ACETAMINOPHEN\HYDROCODONE
     Indication: PRODUCT USED FOR UNKNOWN INDICATION
     Dosage: 10/325 MG
     Route: 065
     Dates: start: 20170216

REACTIONS (12)
  - Drug hypersensitivity [Unknown]
  - Asthma [Unknown]
  - Hyponatraemia [Recovered/Resolved]
  - Sickle cell anaemia with crisis [Unknown]
  - White blood cell count increased [Unknown]
  - Pain in extremity [Unknown]
  - Thrombocytopenia [Recovered/Resolved]
  - Reticulocyte count increased [Unknown]
  - Musculoskeletal pain [Unknown]
  - Product substitution issue [Unknown]
  - Hypoaesthesia [Not Recovered/Not Resolved]
  - Product quality issue [Unknown]

NARRATIVE: CASE EVENT DATE: 20170216
